FAERS Safety Report 21652522 (Version 1)
Quarter: 2022Q4

REPORT INFORMATION
  Report Type: Spontaneous
  Country: US (occurrence: US)
  Receive Date: 20221128
  Receipt Date: 20221128
  Transmission Date: 20230112
  Serious: No
  Sender: FDA-Public Use
  Company Number: US-GALDERMA-US2021020111

PATIENT

DRUGS (1)
  1. CLOBEX [Suspect]
     Active Substance: CLOBETASOL PROPIONATE
     Indication: Product used for unknown indication
     Dosage: 1 DOSAGE FORM
     Route: 065
     Dates: start: 20211217

REACTIONS (2)
  - Accidental exposure to product [Recovered/Resolved]
  - Product container issue [Recovered/Resolved]

NARRATIVE: CASE EVENT DATE: 20211217
